FAERS Safety Report 5216774-6 (Version None)
Quarter: 2007Q1

REPORT INFORMATION
  Report Type: 
  Country: None (occurrence: None)
  Receive Date: 20070118
  Receipt Date: 20070108
  Transmission Date: 20070707
  Serious: Yes (Death, Other)
  Sender: FDA-Public Use
  Company Number: 2007SP000495

PATIENT
  Sex: Male

DRUGS (1)
  1. TEMODAL [Suspect]
     Indication: MIXED OLIGO-ASTROCYTOMA
     Dosage: 200 MG/M2; QD; PO
     Route: 048

REACTIONS (3)
  - HAEMOPTYSIS [None]
  - LUNG DISORDER [None]
  - LYMPHOPENIA [None]
